FAERS Safety Report 8227455-9 (Version None)
Quarter: 2012Q1

REPORT INFORMATION
  Report Type: 
  Country: None (occurrence: None)
  Receive Date: 20120322
  Receipt Date: 20120316
  Transmission Date: 20120608
  Serious: No
  Sender: FDA-Public Use
  Company Number: US-BAYER-2012-027170

PATIENT

DRUGS (1)
  1. ALEVE (CAPLET) [Suspect]
     Dosage: BOTTLE COUNT: NOT REPORTED
     Route: 048
     Dates: start: 20120315

REACTIONS (1)
  - DRUG INEFFECTIVE [None]
